FAERS Safety Report 12520914 (Version 2)
Quarter: 2016Q3

REPORT INFORMATION
  Report Type: Spontaneous
  Country: US (occurrence: US)
  Receive Date: 20160701
  Receipt Date: 20160726
  Transmission Date: 20161109
  Serious: No
  Sender: FDA-Public Use
  Company Number: US-BAYER-2016-122077

PATIENT
  Age: 53 Year
  Sex: Female

DRUGS (1)
  1. BETASERON [Suspect]
     Active Substance: INTERFERON BETA-1B
     Indication: MULTIPLE SCLEROSIS
     Dosage: 0.3 MG, UNK
     Dates: start: 20160613, end: 20160701

REACTIONS (6)
  - Chest pain [Not Recovered/Not Resolved]
  - Insomnia [None]
  - Abdominal pain [None]
  - Memory impairment [None]
  - Drug dose omission [Not Recovered/Not Resolved]
  - Pyrexia [None]

NARRATIVE: CASE EVENT DATE: 20160701
